FAERS Safety Report 8120477-8 (Version None)
Quarter: 2012Q1

REPORT INFORMATION
  Report Type: 
  Country: None (occurrence: None)
  Receive Date: 20120207
  Receipt Date: 20120127
  Transmission Date: 20120608
  Serious: Yes (Other)
  Sender: FDA-Public Use
  Company Number: AR-NOVOPROD-341005

PATIENT
  Age: 42 Year
  Sex: Male
  Weight: 80 kg

DRUGS (2)
  1. NOVORAPID FLEXPEN [Suspect]
     Indication: TYPE 1 DIABETES MELLITUS
     Dosage: 15-20 IU/DAY, ACCORDING TO GLYCAEMIA LEVELS
     Route: 058
     Dates: start: 20100601
  2. LEVEMIR [Suspect]
     Indication: TYPE 1 DIABETES MELLITUS
     Dosage: 62 IU, QD
     Route: 058
     Dates: start: 20100601

REACTIONS (1)
  - CHRONIC LYMPHOCYTIC LEUKAEMIA [None]
